FAERS Safety Report 6875644-8 (Version None)
Quarter: 2010Q3

REPORT INFORMATION
  Report Type: 
  Country: None (occurrence: None)
  Receive Date: 20100727
  Receipt Date: 20100720
  Transmission Date: 20110219
  Serious: Yes (Other)
  Sender: FDA-Public Use
  Company Number: US-ASTRAZENECA-2007UW03626

PATIENT
  Age: 19650 Day
  Sex: Female
  Weight: 88.9 kg

DRUGS (18)
  1. SEROQUEL [Suspect]
     Dosage: 25-100 MG
     Route: 048
     Dates: start: 20030307
  2. SEROQUEL [Suspect]
     Route: 048
     Dates: start: 20031101
  3. NAVANE [Concomitant]
  4. GLUCOPHAGE [Concomitant]
     Dosage: 1000-2000 MG
     Route: 048
     Dates: start: 20051223
  5. SINGULAIR [Concomitant]
     Route: 048
     Dates: start: 20051111
  6. WELLBUTRIN XL [Concomitant]
     Dosage: 150-1200 MG
     Route: 048
     Dates: start: 20010430
  7. THEOPHYLLINE [Concomitant]
     Route: 048
     Dates: start: 20010306
  8. PROZAC [Concomitant]
     Route: 048
     Dates: start: 20000426
  9. PROZAC [Concomitant]
  10. PROZAC [Concomitant]
  11. XANAX [Concomitant]
     Route: 048
     Dates: start: 20070829
  12. CELEXA [Concomitant]
     Dosage: 20-80 MG
     Route: 048
     Dates: start: 20060221, end: 20070201
  13. CELEXA [Concomitant]
     Route: 048
     Dates: start: 20070824
  14. GLIPIZIDE [Concomitant]
     Route: 048
     Dates: start: 20060222
  15. ENALAPRIL MALEATE [Concomitant]
     Route: 048
     Dates: start: 20000802
  16. TORADOL [Concomitant]
     Dates: start: 19940412
  17. DARVOCET-N 100 [Concomitant]
     Dates: start: 19940412
  18. RESTORIL [Concomitant]
     Dates: start: 19940412

REACTIONS (5)
  - DIABETES MELLITUS [None]
  - DIABETIC NEUROPATHY [None]
  - DIABETIC RETINOPATHY [None]
  - HYPERGLYCAEMIA [None]
  - TYPE 2 DIABETES MELLITUS [None]
